FAERS Safety Report 10452106 (Version 1)
Quarter: 2014Q3

REPORT INFORMATION
  Report Type: Spontaneous
  Country: US (occurrence: None)
  Receive Date: 20140910
  Receipt Date: 20140910
  Transmission Date: 20150326
  Serious: Yes (Other)
  Sender: FDA-Public Use
  Company Number: 001795226A

PATIENT
  Age: 13 Year
  Sex: Female

DRUGS (4)
  1. MULTIVITAMIN [Concomitant]
     Active Substance: VITAMINS
  2. PROACTIV REPAIRING TREATMENT [Suspect]
     Active Substance: BENZOYL PEROXIDE
     Indication: ACNE
     Dosage: ONCE DAILY DERMAL
     Dates: start: 20140729, end: 20140806
  3. PROACTIV EXTRA STRENGTH FORMULA CLEANSER [Suspect]
     Active Substance: BENZOYL PEROXIDE
     Indication: ACNE
     Dosage: TWICE DAILY DERMAL
     Dates: start: 20140729, end: 20140806
  4. PROACTIV SOLUTION EXTRA STRENGTH FORMULA TONER ACNE TREATMENT [Suspect]
     Active Substance: SALICYLIC ACID
     Indication: ACNE
     Dosage: ONCE DAILY DERMAL
     Dates: start: 20140729, end: 20140806

REACTIONS (7)
  - Peripheral swelling [None]
  - Eye swelling [None]
  - Urticaria [None]
  - Loss of consciousness [None]
  - Swelling face [None]
  - Lip swelling [None]
  - Vomiting [None]

NARRATIVE: CASE EVENT DATE: 20140806
